FAERS Safety Report 12672058 (Version 1)
Quarter: 2016Q3

REPORT INFORMATION
  Report Type: Spontaneous
  Country: US (occurrence: None)
  Receive Date: 20160819
  Receipt Date: 20160819
  Transmission Date: 20161109
  Serious: Yes (Hospitalization)
  Sender: FDA-Public Use
  Company Number: None

PATIENT
  Age: 69 Year
  Sex: Male
  Weight: 93.9 kg

DRUGS (15)
  1. BIOTIN [Concomitant]
     Active Substance: BIOTIN
  2. ASPIRIN 81MG [Suspect]
     Active Substance: ASPIRIN
     Indication: STENT PLACEMENT
     Route: 048
  3. MIRALAX [Concomitant]
     Active Substance: POLYETHYLENE GLYCOL 3350
  4. RANEXA [Concomitant]
     Active Substance: RANOLAZINE
  5. TAMSULOSIN [Concomitant]
     Active Substance: TAMSULOSIN
  6. FINASTERIDE. [Concomitant]
     Active Substance: FINASTERIDE
  7. IRON DEXTRAN [Concomitant]
     Active Substance: IRON DEXTRAN
  8. ISOSORBIDE. [Concomitant]
     Active Substance: ISOSORBIDE
  9. ASPIRIN 81MG [Suspect]
     Active Substance: ASPIRIN
     Indication: CORONARY ARTERY DISEASE
     Route: 048
  10. PLAVIX [Suspect]
     Active Substance: CLOPIDOGREL BISULFATE
     Indication: CORONARY ARTERY DISEASE
     Route: 048
  11. LISINOPRIL. [Concomitant]
     Active Substance: LISINOPRIL
  12. EDOXABAN [Concomitant]
     Active Substance: EDOXABAN TOSYLATE
  13. FAMOTIDINE. [Concomitant]
     Active Substance: FAMOTIDINE
  14. NITROSTAT [Concomitant]
     Active Substance: NITROGLYCERIN
  15. TRIAMCINOLONE [Concomitant]
     Active Substance: TRIAMCINOLONE

REACTIONS (2)
  - Anaemia [None]
  - Gastrointestinal haemorrhage [None]

NARRATIVE: CASE EVENT DATE: 20160809
